FAERS Safety Report 18072000 (Version 1)
Quarter: 2020Q3

REPORT INFORMATION
  Report Type: Spontaneous
  Country: US (occurrence: US)
  Receive Date: 20200727
  Receipt Date: 20200727
  Transmission Date: 20201103
  Serious: No
  Sender: FDA-Public Use
  Company Number: US-PFIZER INC-2020282605

PATIENT
  Age: 79 Year
  Sex: Female
  Weight: 77.11 kg

DRUGS (3)
  1. PREMARIN [Suspect]
     Active Substance: ESTROGENS, CONJUGATED
     Indication: ANXIETY
     Dosage: 0.3 MG, DAILY (ONE TABLET BY MOUTH A DAY)
     Route: 048
  2. PREMARIN [Suspect]
     Active Substance: ESTROGENS, CONJUGATED
     Indication: OESTROGEN REPLACEMENT THERAPY
  3. PREMARIN [Suspect]
     Active Substance: ESTROGENS, CONJUGATED
     Indication: DEPRESSION

REACTIONS (2)
  - Depressed mood [Unknown]
  - Insomnia [Unknown]
